FAERS Safety Report 13946501 (Version 1)
Quarter: 2017Q3

REPORT INFORMATION
  Report Type: Report from Study
  Country: US (occurrence: US)
  Receive Date: 20170907
  Receipt Date: 20170907
  Transmission Date: 20171128
  Serious: Yes (Other)
  Sender: FDA-Public Use
  Company Number: PHEH2017US028493

PATIENT
  Weight: 76.2 kg

DRUGS (1)
  1. COSENTYX [Suspect]
     Active Substance: SECUKINUMAB
     Indication: PSORIATIC ARTHROPATHY
     Dosage: 300 MG, QMO (EVERY 4 WEEKS 2 PENS)
     Route: 058

REACTIONS (3)
  - Hydrocephalus [Unknown]
  - Drug ineffective [Unknown]
  - Psoriasis [Unknown]
